FAERS Safety Report 9523816 (Version 2)
Quarter: 2013Q3

REPORT INFORMATION
  Report Type: Spontaneous
  Country: CA (occurrence: CA)
  Receive Date: 20130916
  Receipt Date: 20130916
  Transmission Date: 20140515
  Serious: Yes (Hospitalization)
  Sender: FDA-Public Use
  Company Number: CA-AMGEN-CANSP2013005946

PATIENT
  Age: 59 Year
  Sex: Male

DRUGS (12)
  1. ENBREL [Suspect]
     Indication: RHEUMATOID ARTHRITIS
     Dosage: 50 MG, UNK
     Route: 065
     Dates: start: 20130104
  2. ENBREL [Suspect]
     Dosage: UNK
     Route: 065
  3. MTX                                /00113801/ [Concomitant]
     Dosage: 2.5 MG, UNK
  4. DICLOFENAC [Concomitant]
     Dosage: UNK
  5. PERIATIN [Concomitant]
     Dosage: UNK
  6. CIPRALEX                           /01588501/ [Concomitant]
     Dosage: 10 MG, DAILY
  7. ACTONEL [Concomitant]
     Dosage: 35 MG, QWK
  8. FOLIC ACID [Concomitant]
     Dosage: 5 MG, DAILY
  9. MORPHIN                            /00036302/ [Concomitant]
     Dosage: UNK
  10. SOFLAX                             /00061602/ [Concomitant]
     Dosage: 10 MG, UNK
  11. LEFLUNOMIDE [Concomitant]
     Dosage: 20 MG, QD
  12. RABEPRAZOLE [Concomitant]
     Dosage: 10 MG, UNK

REACTIONS (8)
  - Drug effect incomplete [Not Recovered/Not Resolved]
  - Pain [Not Recovered/Not Resolved]
  - Condition aggravated [Unknown]
  - Joint swelling [Unknown]
  - Arthralgia [Unknown]
  - Activities of daily living impaired [Unknown]
  - Sleep disorder due to general medical condition, insomnia type [Unknown]
  - Nasopharyngitis [Recovered/Resolved]
